FAERS Safety Report 9253872 (Version 2)
Quarter: 2013Q4

REPORT INFORMATION
  Report Type: Spontaneous
  Country: GB (occurrence: GB)
  Receive Date: 20130425
  Receipt Date: 20131005
  Transmission Date: 20140711
  Serious: Yes (Disabling)
  Sender: FDA-Public Use
  Company Number: GB-MICRO LABS LIMITED-BB2013-GB-00222

PATIENT
  Age: 71 Year
  Sex: Male

DRUGS (8)
  1. SIMVASTATIN [Suspect]
     Indication: HYPERCHOLESTEROLAEMIA
     Route: 048
     Dates: start: 20120730, end: 20120802
  2. ATORVASTATIN [Suspect]
     Indication: HYPERCHOLESTEROLAEMIA
     Route: 048
     Dates: start: 20120803, end: 20120807
  3. CLOPIDOGREL [Suspect]
     Indication: ANTIPLATELET THERAPY
     Route: 048
     Dates: start: 20120730
  4. EZETROL [Suspect]
     Indication: HYPERCHOLESTEROLAEMIA
     Route: 048
     Dates: start: 20120808, end: 20120810
  5. ASPIRIN [Concomitant]
     Indication: PRODUCT USED FOR UNKNOWN INDICATION
     Route: 065
  6. FEXOFENADINE [Concomitant]
     Indication: PRODUCT USED FOR UNKNOWN INDICATION
     Route: 065
  7. FLUCLOXACILLIN [Concomitant]
     Indication: PRODUCT USED FOR UNKNOWN INDICATION
     Route: 065
  8. LACTULOSE SOLUTION [Concomitant]
     Indication: PRODUCT USED FOR UNKNOWN INDICATION
     Route: 065

REACTIONS (2)
  - Dyspnoea [Recovered/Resolved]
  - Cough [Recovered/Resolved]
